FAERS Safety Report 9310630 (Version 1)
Quarter: 2013Q2

REPORT INFORMATION
  Report Type: Spontaneous
  Country: US (occurrence: US)
  Receive Date: 20130527
  Receipt Date: 20130527
  Transmission Date: 20140414
  Serious: No
  Sender: FDA-Public Use
  Company Number: US-B.I. PHARMACEUTICALS,INC./RIDGEFIELD-2013-BI-14654BP

PATIENT
  Age: 78 Year
  Sex: Male
  Weight: 73 kg

DRUGS (4)
  1. SPIRIVA [Suspect]
     Indication: LUNG DISORDER
     Dosage: 18 MCG
     Route: 055
     Dates: start: 20130520
  2. PULMICORT TURBUHALER [Concomitant]
     Indication: LUNG DISORDER
     Dosage: 180 MCG
     Route: 055
     Dates: start: 20130520
  3. LOVENOX [Concomitant]
     Indication: DEEP VEIN THROMBOSIS
     Dosage: FORMULATION-INTRAMUSCULAR
     Route: 030
     Dates: start: 20130101
  4. PROBIOTIC [Concomitant]
     Indication: DIARRHOEA
     Dosage: 1 ANZ
     Route: 048
     Dates: start: 2000

REACTIONS (1)
  - Incorrect route of drug administration [Recovered/Resolved]
